FAERS Safety Report 9060795 (Version 1)
Quarter: 2013Q1

REPORT INFORMATION
  Report Type: Spontaneous
  Country: US (occurrence: US)
  Receive Date: 20130204
  Receipt Date: 20130204
  Transmission Date: 20140127
  Serious: Yes (Death)
  Sender: FDA-Public Use
  Company Number: US-FRI-1000042161

PATIENT
  Age: 67 None
  Sex: Female

DRUGS (10)
  1. SAVELLA [Suspect]
     Indication: DEPRESSION
     Dosage: 12.5MG
     Route: 048
     Dates: start: 20120705, end: 20120705
  2. SAVELLA [Suspect]
     Indication: ARTHRALGIA
     Dosage: 25MG
     Route: 048
     Dates: start: 20120706, end: 20120707
  3. SAVELLA [Suspect]
     Indication: HEADACHE
  4. SAVELLA [Suspect]
     Indication: DEPRESSION
     Dosage: 50MG
     Route: 048
     Dates: start: 20120708, end: 201209
  5. SAVELLA [Suspect]
     Indication: ARTHRALGIA
     Dosage: 25MG
     Route: 048
     Dates: start: 201209, end: 201209
  6. SAVELLA [Suspect]
     Indication: HEADACHE
     Dosage: 12.5MG
     Route: 048
     Dates: start: 201209, end: 201209
  7. EFEXOR [Concomitant]
     Indication: DEPRESSION
  8. DIOVAN [Concomitant]
     Indication: HYPERTENSION
  9. VITAMIN (NOS) [Concomitant]
     Indication: SUPPLEMENTATION THERAPY
  10. VALIUM [Concomitant]
     Dosage: AS NEEDED

REACTIONS (8)
  - Multi-organ failure [Fatal]
  - Vertigo [Unknown]
  - Depression [Unknown]
  - Abdominal pain [Unknown]
  - Paraesthesia [Unknown]
  - Asthenia [Unknown]
  - Pyrexia [Unknown]
  - Off label use [Recovered/Resolved]
